FAERS Safety Report 15147088 (Version 2)
Quarter: 2018Q3

REPORT INFORMATION
  Report Type: Spontaneous
  Country: US (occurrence: US)
  Receive Date: 20180716
  Receipt Date: 20180928
  Transmission Date: 20181010
  Serious: Yes (Other)
  Sender: FDA-Public Use
  Company Number: US-TAKEDA-2018MPI009225

PATIENT
  Sex: Male

DRUGS (1)
  1. NINLARO [Suspect]
     Active Substance: IXAZOMIB CITRATE
     Indication: PLASMA CELL MYELOMA
     Dosage: 4 MG, UNK
     Route: 048
     Dates: start: 20180608, end: 20180824

REACTIONS (7)
  - Chest discomfort [Unknown]
  - Abdominal pain upper [Unknown]
  - Constipation [Unknown]
  - Dry mouth [Unknown]
  - Flatulence [Unknown]
  - Plasma cell myeloma [Unknown]
  - Blood pressure fluctuation [Unknown]
